FAERS Safety Report 4700395-5 (Version None)
Quarter: 2005Q2

REPORT INFORMATION
  Report Type: 
  Country: None (occurrence: None)
  Receive Date: 20050209
  Receipt Date: 20050209
  Transmission Date: 20051028
  Serious: No
  Sender: FDA-Public Use
  Company Number: None

PATIENT
  Sex: Female

DRUGS (1)
  1. CLONAZEPAM [Suspect]
     Indication: BIPOLAR DISORDER
     Dosage: 1PO BID PRN
     Route: 048
     Dates: start: 20020123

REACTIONS (1)
  - PHARMACEUTICAL PRODUCT COMPLAINT [None]
